FAERS Safety Report 11814794 (Version 10)
Quarter: 2017Q3

REPORT INFORMATION
  Report Type: Report from Study
  Country: DE (occurrence: DE)
  Receive Date: 20151209
  Receipt Date: 20170726
  Transmission Date: 20171127
  Serious: Yes (Hospitalization, Disabling, Other)
  Sender: FDA-Public Use
  Company Number: PHHY2015DE160128

PATIENT
  Age: 48 Year
  Sex: Female
  Weight: 60 kg

DRUGS (7)
  1. DESOGESTREL [Concomitant]
     Active Substance: DESOGESTREL
     Indication: CONTRACEPTION
     Dosage: 75 OT, UNK
     Route: 065
     Dates: start: 20170301
  2. GILENYA [Suspect]
     Active Substance: FINGOLIMOD HYDROCHLORIDE
     Dosage: 0.5 MG, QD
     Route: 048
     Dates: start: 20160427
  3. GILENYA [Suspect]
     Active Substance: FINGOLIMOD HYDROCHLORIDE
     Indication: MULTIPLE SCLEROSIS
     Dosage: 0.5 MG, QD
     Route: 048
     Dates: start: 20151021, end: 20151201
  4. IBUPROFEN. [Concomitant]
     Active Substance: IBUPROFEN
     Indication: PRODUCT USED FOR UNKNOWN INDICATION
     Dosage: 600 MG, UNK
     Route: 065
     Dates: start: 20160628
  5. URBASON                                 /GFR/ [Concomitant]
     Active Substance: METHYLPREDNISOLONE
     Indication: PRODUCT USED FOR UNKNOWN INDICATION
     Dosage: 1000 MG, TID
     Route: 065
     Dates: start: 20151026, end: 20151028
  6. RAMIPRIL. [Suspect]
     Active Substance: RAMIPRIL
     Indication: PRODUCT USED FOR UNKNOWN INDICATION
     Dosage: UNK
     Route: 065
  7. LERCANIDIPINE [Concomitant]
     Active Substance: LERCANIDIPINE
     Indication: PRODUCT USED FOR UNKNOWN INDICATION
     Dosage: UNK
     Route: 065

REACTIONS (17)
  - Hepatic adenoma [Unknown]
  - Hyperplastic cholecystopathy [Unknown]
  - Toxicity to various agents [Unknown]
  - Portal fibrosis [Unknown]
  - Breast disorder [Unknown]
  - Hepatic lesion [Unknown]
  - Weight decreased [Unknown]
  - Lacrimation increased [Not Recovered/Not Resolved]
  - General physical health deterioration [Unknown]
  - Hypertension [Unknown]
  - Autoimmune hepatitis [Unknown]
  - Jaundice [Recovered/Resolved]
  - Hepatic steatosis [Unknown]
  - Alopecia [Unknown]
  - Lymphadenopathy [Unknown]
  - Transaminases increased [Recovered/Resolved]
  - Hepatic necrosis [Unknown]

NARRATIVE: CASE EVENT DATE: 201511
